FAERS Safety Report 8957421 (Version 3)
Quarter: 2012Q4

REPORT INFORMATION
  Report Type: 
  Country: NL (occurrence: NL)
  Receive Date: 20121210
  Receipt Date: 20121224
  Transmission Date: 20130627
  Serious: Yes (Life-Threatening)
  Sender: FDA-Public Use
  Company Number: NL-GILEAD-2012-0066007

PATIENT
  Age: 35 Year
  Sex: Male

DRUGS (13)
  1. TRUVADA [Suspect]
     Indication: HIV INFECTION
     Dosage: UNK
     Dates: start: 20120911, end: 20121116
  2. NEVIRAPINE [Suspect]
     Indication: HIV INFECTION
     Dosage: 200 mg, UNK
     Dates: start: 20120911, end: 20121116
  3. ATRIPLA [Concomitant]
     Dosage: UNK
     Dates: end: 20120911
  4. MULTIVITAMINS [Concomitant]
     Dosage: 1 DF, QD
  5. TAVEGYL [Concomitant]
     Dosage: 1 mg, BID
  6. NISITA                             /00049401/ [Concomitant]
     Dosage: 1 DF, prn
  7. PREDNISOLON                        /00016201/ [Concomitant]
     Dosage: 30 mg, QD
  8. PANTOPRAZOL [Concomitant]
     Dosage: 40 mg, QD
  9. LACTULOSE [Concomitant]
     Dosage: 30 ml, QD
  10. ALENDRONIC ACID [Concomitant]
     Dosage: 70 mg, Q1Wk
  11. PARACETAMOL [Concomitant]
     Dosage: 500 mg, prn
  12. ASCAL BRISPER CARDIO-NEURO [Concomitant]
     Dosage: 100 mg, UNK
  13. PERSANTIN RETARD [Concomitant]
     Dosage: 200 mg, UNK

REACTIONS (2)
  - Cardiomyopathy [Recovering/Resolving]
  - Tubulointerstitial nephritis [Recovering/Resolving]
